FAERS Safety Report 5398192-3 (Version None)
Quarter: 2007Q3

REPORT INFORMATION
  Report Type: 
  Country: None (occurrence: None)
  Receive Date: 20070726
  Receipt Date: 20070716
  Transmission Date: 20080115
  Serious: Yes (Other)
  Sender: FDA-Public Use
  Company Number: US-PFIZER INC-2007059791

PATIENT
  Age: 68 Year
  Sex: Male

DRUGS (9)
  1. DILANTIN [Suspect]
     Indication: MIXED OLIGO-ASTROCYTOMA
     Dosage: DAILY DOSE:250MG
     Dates: start: 20050401, end: 20050401
  2. TEMOZOLOMIDE [Interacting]
     Indication: MIXED OLIGO-ASTROCYTOMA
     Dosage: DAILY DOSE:400MG
     Route: 048
     Dates: start: 20050401, end: 20050601
  3. PROTONIX [Concomitant]
  4. TERAZOSIN HCL [Concomitant]
  5. COLACE [Concomitant]
  6. VITAMIN CAP [Concomitant]
  7. ZOFRAN [Concomitant]
  8. LOVENOX [Concomitant]
  9. DEXAMETHASONE 0.5MG TAB [Concomitant]

REACTIONS (6)
  - ANTICONVULSANT DRUG LEVEL INCREASED [None]
  - APHASIA [None]
  - DELIRIUM [None]
  - DRUG INTERACTION [None]
  - WALKING DISABILITY [None]
  - WHITE BLOOD CELL COUNT DECREASED [None]
